FAERS Safety Report 17900334 (Version 5)
Quarter: 2021Q2

REPORT INFORMATION
  Report Type: Spontaneous
  Country: US (occurrence: US)
  Receive Date: 20200616
  Receipt Date: 20210405
  Transmission Date: 20210717
  Serious: Yes (Other)
  Sender: FDA-Public Use
  Company Number: US-PFIZER INC-2020232697

PATIENT
  Age: 47 Year
  Sex: Female
  Weight: 68 kg

DRUGS (5)
  1. IBRANCE [Suspect]
     Active Substance: PALBOCICLIB
     Indication: BREAST CANCER FEMALE
  2. IBRANCE [Suspect]
     Active Substance: PALBOCICLIB
     Indication: BREAST CANCER METASTATIC
     Dosage: 75 MG, CYCLIC (ONCE A DAY 21 DAYS OFF 7 DAYS)
     Dates: start: 2017, end: 2017
  3. IBRANCE [Suspect]
     Active Substance: PALBOCICLIB
     Indication: BREAST CANCER FEMALE
     Dosage: 75 MG, CYCLIC (1 TAB ORALLY ONCE A DAY WITH FOOD FOR 21 DAYS, THEN A 7 DAY REST (OFF))
     Route: 048
     Dates: start: 20171221
  4. NARDIL [Concomitant]
     Active Substance: PHENELZINE SULFATE
     Dosage: UNK
  5. COVID?19 VACCINE NOS. [Concomitant]
     Active Substance: COVID-19 VACCINE NOS

REACTIONS (2)
  - Blood count abnormal [Unknown]
  - Neutropenia [Not Recovered/Not Resolved]
